FAERS Safety Report 18575289 (Version 1)
Quarter: 2020Q4

REPORT INFORMATION
  Report Type: Spontaneous
  Country: GB (occurrence: GB)
  Receive Date: 20201203
  Receipt Date: 20201203
  Transmission Date: 20210114
  Serious: Yes (Disabling, Other)
  Sender: FDA-Public Use
  Company Number: GB-BIOCON-BCN-2019-001246

PATIENT
  Age: 74 Year
  Sex: Male
  Weight: 88 kg

DRUGS (9)
  1. VISCOTEARS [Concomitant]
     Active Substance: CARBOMER
     Dosage: 3-4 TIMES DAILY. 2MG/G 0.6ML UNIT DOSE.
     Dates: start: 20180307
  2. NAPROXEN. [Concomitant]
     Active Substance: NAPROXEN
     Dates: start: 20180307
  3. OMEPRAZOLE. [Concomitant]
     Active Substance: OMEPRAZOLE
     Dates: start: 20180329
  4. ALLOPURINOL. [Suspect]
     Active Substance: ALLOPURINOL
     Indication: PRODUCT USED FOR UNKNOWN INDICATION
  5. COLCHICINE. [Concomitant]
     Active Substance: COLCHICINE
     Dosage: FOR 4 DAYS
     Dates: start: 20180326
  6. BISOPROLOL [Concomitant]
     Active Substance: BISOPROLOL
     Dates: start: 20180314
  7. PREDNISOLONE. [Concomitant]
     Active Substance: PREDNISOLONE
     Dates: start: 20180426
  8. ROSUVASTATIN CALCIUM. [Suspect]
     Active Substance: ROSUVASTATIN CALCIUM
     Indication: PRODUCT USED FOR UNKNOWN INDICATION
     Route: 048
     Dates: start: 20180314
  9. ACETYLSALICYLIC ACID [Concomitant]
     Active Substance: ASPIRIN
     Dates: start: 20180314

REACTIONS (4)
  - Pain in extremity [Unknown]
  - Myositis [Recovered/Resolved]
  - Blood creatine phosphokinase increased [Unknown]
  - Myalgia [Unknown]

NARRATIVE: CASE EVENT DATE: 20180521
